FAERS Safety Report 4757600-9 (Version None)
Quarter: 2005Q3

REPORT INFORMATION
  Report Type: 
  Country: None (occurrence: None)
  Receive Date: 20050831
  Receipt Date: 20050822
  Transmission Date: 20060218
  Serious: Yes (Hospitalization)
  Sender: FDA-Public Use
  Company Number: 2005PK01559

PATIENT
  Age: 68 Year
  Sex: Male

DRUGS (11)
  1. METOPROLOL SUCCINATE [Interacting]
     Indication: MYOCARDIAL ISCHAEMIA
     Route: 048
     Dates: start: 20050601, end: 20050701
  2. METOPROLOL SUCCINATE [Interacting]
     Route: 048
     Dates: start: 20050701
  3. TAVEGYL [Interacting]
     Indication: ANGIONEUROTIC OEDEMA
     Route: 048
     Dates: start: 20050715, end: 20050718
  4. RENITEN MITE [Suspect]
     Route: 048
  5. ASPIRIN [Concomitant]
     Indication: MYOCARDIAL ISCHAEMIA
     Route: 048
  6. PLAVIX [Concomitant]
     Indication: MYOCARDIAL ISCHAEMIA
     Route: 048
     Dates: start: 20050601
  7. NEXIUM [Concomitant]
     Route: 048
  8. ATACAND [Concomitant]
     Indication: ESSENTIAL HYPERTENSION
     Route: 048
  9. SIMCORA [Concomitant]
     Indication: HYPERCHOLESTEROLAEMIA
  10. GLUCOPHAGE [Concomitant]
     Indication: DIABETES MELLITUS NON-INSULIN-DEPENDENT
     Route: 048
  11. AMARYL [Concomitant]
     Indication: DIABETES MELLITUS NON-INSULIN-DEPENDENT
     Route: 048

REACTIONS (4)
  - ANAPHYLACTIC REACTION [None]
  - ANGIONEUROTIC OEDEMA [None]
  - BRADYCARDIA [None]
  - DRUG INTERACTION [None]
